FAERS Safety Report 7954870-0 (Version None)
Quarter: 2011Q4

REPORT INFORMATION
  Report Type: 
  Country: None (occurrence: None)
  Receive Date: 20111202
  Receipt Date: 20111129
  Transmission Date: 20120403
  Serious: Yes (Death, Hospitalization)
  Sender: FDA-Public Use
  Company Number: US-CEPHALON-2011006022

PATIENT
  Sex: Male

DRUGS (2)
  1. TREANDA [Suspect]
     Indication: B-CELL LYMPHOMA
     Route: 042
     Dates: end: 20110808
  2. RITUXAN [Concomitant]
     Indication: B-CELL LYMPHOMA
     Route: 042
     Dates: end: 20110901

REACTIONS (2)
  - ANAEMIA [None]
  - B-CELL LYMPHOMA [None]
